FAERS Safety Report 16912953 (Version 1)
Quarter: 2019Q4

REPORT INFORMATION
  Report Type: Spontaneous
  Country: US (occurrence: US)
  Receive Date: 20191014
  Receipt Date: 20191014
  Transmission Date: 20200122
  Serious: No
  Sender: FDA-Public Use
  Company Number: US-ASTRAZENECA-2019SF40702

PATIENT
  Age: 74 Year
  Sex: Female
  Weight: 65.3 kg

DRUGS (3)
  1. RANITIDINE. [Concomitant]
     Active Substance: RANITIDINE
  2. OMEPRAZOLE. [Suspect]
     Active Substance: OMEPRAZOLE
     Route: 065
  3. NEXIUM 24HR [Suspect]
     Active Substance: ESOMEPRAZOLE MAGNESIUM
     Indication: GASTROOESOPHAGEAL REFLUX DISEASE
     Dosage: 2 CAPSULES EVERY MORNING BY MOUTH, 40 MG TOTAL.
     Route: 048

REACTIONS (1)
  - Dyspepsia [Unknown]
